FAERS Safety Report 6412224-2 (Version None)
Quarter: 2009Q4

REPORT INFORMATION
  Report Type: 
  Country: None (occurrence: None)
  Receive Date: 20091023
  Receipt Date: 20091016
  Transmission Date: 20100525
  Serious: Yes (Death)
  Sender: FDA-Public Use
  Company Number: B0598337A

PATIENT
  Sex: Female
  Weight: 72 kg

DRUGS (3)
  1. LAPATINIB [Suspect]
     Dosage: 1500MG PER DAY
     Route: 048
     Dates: start: 20081224, end: 20090915
  2. RADIATION THERAPY [Concomitant]
     Dates: start: 20010909
  3. CHEMOTHERAPY [Concomitant]
     Dates: start: 20020306

REACTIONS (1)
  - SUDDEN DEATH [None]
